FAERS Safety Report 25307408 (Version 3)
Quarter: 2025Q2

REPORT INFORMATION
  Report Type: Spontaneous
  Country: US (occurrence: US)
  Receive Date: 20250513
  Receipt Date: 20250624
  Transmission Date: 20250716
  Serious: No
  Sender: BOEHRINGER INGELHEIM
  Company Number: US-Komodo Health-a23aa000007WMivAAG

PATIENT
  Age: 77 Year
  Sex: Female

DRUGS (1)
  1. SPIRIVA [Suspect]
     Active Substance: TIOTROPIUM BROMIDE MONOHYDRATE
     Indication: Product used for unknown indication

REACTIONS (4)
  - Dyspnoea [Not Recovered/Not Resolved]
  - Choking [Not Recovered/Not Resolved]
  - Product dose omission issue [Unknown]
  - Device malfunction [Unknown]

NARRATIVE: CASE EVENT DATE: 20250101
